FAERS Safety Report 9287086 (Version 2)
Quarter: 2013Q2

REPORT INFORMATION
  Report Type: Spontaneous
  Country: US (occurrence: None)
  Receive Date: 20130508
  Receipt Date: 20130528
  Transmission Date: 20140414
  Serious: Yes (Hospitalization, Other)
  Sender: FDA-Public Use
  Company Number: AUR-APL-2013-03838

PATIENT
  Age: 71 Year
  Sex: Female

DRUGS (6)
  1. LISINOPRIL [Suspect]
     Indication: PRODUCT USED FOR UNKNOWN INDICATION
  2. ENBREL [Suspect]
     Indication: RHEUMATOID ARTHRITIS
     Dosage: 1 WK
     Dates: start: 20100101, end: 20120113
  3. TRAMADOL [Suspect]
     Indication: PRODUCT USED FOR UNKNOWN INDICATION
  4. PREDNISONE (PREDNISONE ) [Concomitant]
  5. ALLEGRA (FEXOFENADINE) [Concomitant]
  6. NORVASC (AMLODIPINE BESILATE) [Concomitant]

REACTIONS (26)
  - Diabetes mellitus [None]
  - Parathyroid tumour benign [None]
  - Blood calcium increased [None]
  - Fatigue [None]
  - Arthralgia [None]
  - Fall [None]
  - Injection site reaction [None]
  - Paraesthesia oral [None]
  - Swollen tongue [None]
  - Swelling face [None]
  - Urticaria [None]
  - Dysphagia [None]
  - Eye swelling [None]
  - Eye pruritus [None]
  - Lacrimation increased [None]
  - Ocular hyperaemia [None]
  - Mobility decreased [None]
  - Pain [None]
  - Musculoskeletal stiffness [None]
  - Motor dysfunction [None]
  - Hyperparathyroidism [None]
  - Thinking abnormal [None]
  - Respiratory disorder [None]
  - Speech disorder [None]
  - Diarrhoea [None]
  - Irritable bowel syndrome [None]
